FAERS Safety Report 5045941-X (Version None)
Quarter: 2006Q2

REPORT INFORMATION
  Report Type: 
  Country: None (occurrence: None)
  Receive Date: 20060601
  Receipt Date: 20060316
  Transmission Date: 20061013
  Serious: No
  Sender: FDA-Public Use
  Company Number: 2006PV010370

PATIENT
  Age: 56 Year
  Sex: Male
  Weight: 151.955 kg

DRUGS (6)
  1. BYETTA [Suspect]
     Indication: DIABETES MELLITUS NON-INSULIN-DEPENDENT
     Dosage: 5 MCG;BID;SC
     Route: 058
     Dates: start: 20060216
  2. METFORMIN [Concomitant]
  3. NOVOLIN [Concomitant]
  4. LANTUS [Concomitant]
  5. STARLIX [Concomitant]
  6. MUSCLE RELAXER [Concomitant]

REACTIONS (11)
  - ANOREXIA [None]
  - BLOOD GLUCOSE INCREASED [None]
  - CONDITION AGGRAVATED [None]
  - ENERGY INCREASED [None]
  - FALL [None]
  - INFREQUENT BOWEL MOVEMENTS [None]
  - INJECTION SITE HAEMORRHAGE [None]
  - LOSS OF CONTROL OF LEGS [None]
  - MUSCLE SPASMS [None]
  - NAUSEA [None]
  - WEIGHT DECREASED [None]
